FAERS Safety Report 13472777 (Version 1)
Quarter: 2017Q2

REPORT INFORMATION
  Report Type: Spontaneous
  Country: US (occurrence: US)
  Receive Date: 20170424
  Receipt Date: 20170424
  Transmission Date: 20170830
  Serious: Yes (Hospitalization)
  Sender: FDA-Public Use
  Company Number: US-SA-2017SA071250

PATIENT
  Sex: Female

DRUGS (19)
  1. AUBAGIO [Suspect]
     Active Substance: TERIFLUNOMIDE
     Indication: MULTIPLE SCLEROSIS
     Route: 048
  2. AMLODIPINE [Concomitant]
     Active Substance: AMLODIPINE BESYLATE
  3. LEVETIRACETAM. [Concomitant]
     Active Substance: LEVETIRACETAM
  4. ONDANSETRON [Concomitant]
     Active Substance: ONDANSETRON
     Dosage: ODT
  5. OMEPRAZOLE. [Concomitant]
     Active Substance: OMEPRAZOLE
     Dosage: 20.6 MGDR
  6. HYDROCHLOROTHIAZIDE/TRIAMTERENE [Concomitant]
     Dosage: 75-50 MG
  7. BUTRANS [Concomitant]
     Active Substance: BUPRENORPHINE
     Dosage: 7.5/HR
  8. CLONIDINE. [Concomitant]
     Active Substance: CLONIDINE
  9. DOXEPIN HYDROCHLORIDE. [Concomitant]
     Active Substance: DOXEPIN HYDROCHLORIDE
  10. KLOR-CON [Concomitant]
     Active Substance: POTASSIUM CHLORIDE
  11. METOPROLOL. [Concomitant]
     Active Substance: METOPROLOL
  12. ATORVASTATIN [Concomitant]
     Active Substance: ATORVASTATIN
  13. LISINOPRIL. [Concomitant]
     Active Substance: LISINOPRIL
  14. POLYETHYLENE GLYCOL [Concomitant]
     Active Substance: POLYETHYLENE GLYCOLS
     Dosage: POW 3350 NF
  15. REBIF [Concomitant]
     Active Substance: INTERFERON BETA-1A
     Dosage: INJ 44/0.5
  16. SPIRONOLACTONE. [Concomitant]
     Active Substance: SPIRONOLACTONE
  17. AMOXICILLIN. [Concomitant]
     Active Substance: AMOXICILLIN
  18. CLARITHROMYCIN. [Concomitant]
     Active Substance: CLARITHROMYCIN
  19. HYDROCODONE BITARTRATE AND ACETAMINOPHEN [Concomitant]
     Active Substance: ACETAMINOPHEN\HYDROCODONE BITARTRATE
     Dosage: 10-325 MG

REACTIONS (3)
  - Myocardial infarction [Not Recovered/Not Resolved]
  - Cerebrovascular accident [Not Recovered/Not Resolved]
  - Central nervous system lesion [Not Recovered/Not Resolved]
